FAERS Safety Report 7490110-7 (Version None)
Quarter: 2011Q2

REPORT INFORMATION
  Report Type: 
  Country: None (occurrence: None)
  Receive Date: 20110519
  Receipt Date: 20110516
  Transmission Date: 20111010
  Serious: No
  Sender: FDA-Public Use
  Company Number: US-PFIZER INC-2011104923

PATIENT
  Sex: Female
  Weight: 88 kg

DRUGS (2)
  1. PRISTIQ [Suspect]
     Indication: ANXIETY
     Dosage: 50 MG, 1X/DAY
     Route: 048
     Dates: start: 20110514
  2. ZANAFLEX [Concomitant]
     Dosage: UNK

REACTIONS (5)
  - NAUSEA [None]
  - RESTLESSNESS [None]
  - MUSCULAR WEAKNESS [None]
  - HEAD DISCOMFORT [None]
  - ASTHENIA [None]
